FAERS Safety Report 24874144 (Version 1)
Quarter: 2025Q1

REPORT INFORMATION
  Report Type: Spontaneous
  Country: US (occurrence: US)
  Receive Date: 20250122
  Receipt Date: 20250122
  Transmission Date: 20250408
  Serious: Yes (Other)
  Sender: SANOFI AVENTIS
  Company Number: US-SA-2025SA019050

PATIENT
  Sex: Male
  Weight: 74.09 kg

DRUGS (1)
  1. DUPIXENT [Suspect]
     Active Substance: DUPILUMAB
     Indication: Dermatitis atopic
     Dosage: 300 MG, QOW
     Route: 058

REACTIONS (4)
  - Neoplasm malignant [Unknown]
  - Squamous cell carcinoma of head and neck [Unknown]
  - Skin lesion [Unknown]
  - Papilloma viral infection [Unknown]
